FAERS Safety Report 9541864 (Version 1)
Quarter: 2013Q3

REPORT INFORMATION
  Report Type: Report from Study
  Country: AU (occurrence: AU)
  Receive Date: 20130923
  Receipt Date: 20130923
  Transmission Date: 20140515
  Serious: Yes (Other)
  Sender: FDA-Public Use
  Company Number: PHHY2013AU104821

PATIENT
  Age: 54 Year
  Sex: Female

DRUGS (1)
  1. ACLASTA [Suspect]
     Dosage: 5 MG, UNK
     Route: 042
     Dates: start: 20120824

REACTIONS (3)
  - Fall [Recovered/Resolved]
  - Ankle fracture [Recovered/Resolved]
  - Bone pain [Recovered/Resolved]
